FAERS Safety Report 24899607 (Version 1)
Quarter: 2025Q1

REPORT INFORMATION
  Report Type: Spontaneous
  Country: US (occurrence: US)
  Receive Date: 20250129
  Receipt Date: 20250129
  Transmission Date: 20250408
  Serious: No
  Sender: JOHNSON AND JOHNSON
  Company Number: US-JNJFOC-20241237446

PATIENT
  Sex: Female

DRUGS (2)
  1. TREMFYA [Suspect]
     Active Substance: GUSELKUMAB
     Indication: Colitis ulcerative
     Route: 058
  2. TREMFYA [Suspect]
     Active Substance: GUSELKUMAB
     Route: 058

REACTIONS (2)
  - Off label use [Unknown]
  - Drug ineffective [Unknown]
